FAERS Safety Report 10729576 (Version 1)
Quarter: 2015Q1

REPORT INFORMATION
  Report Type: Spontaneous
  Country: US (occurrence: None)
  Receive Date: 20150121
  Receipt Date: 20150121
  Transmission Date: 20150721
  Serious: Yes (Other)
  Sender: FDA-Public Use
  Company Number: None

PATIENT
  Age: 63 Year
  Sex: Male

DRUGS (11)
  1. AMPYRA [Suspect]
     Active Substance: DALFAMPRIDINE
     Indication: MULTIPLE SCLEROSIS
     Route: 048
     Dates: start: 201209
  2. PROSCAR [Concomitant]
     Active Substance: FINASTERIDE
  3. EFFEXOR [Concomitant]
     Active Substance: VENLAFAXINE HYDROCHLORIDE
  4. RITUXAN [Concomitant]
     Active Substance: RITUXIMAB
  5. DITROPAN [Concomitant]
     Active Substance: OXYBUTYNIN CHLORIDE
  6. VICODIN [Concomitant]
     Active Substance: ACETAMINOPHEN\HYDROCODONE BITARTRATE
  7. PRILOSEC [Concomitant]
     Active Substance: OMEPRAZOLE MAGNESIUM
  8. AMPYRA [Concomitant]
     Active Substance: DALFAMPRIDINE
  9. BACLOFEN. [Concomitant]
     Active Substance: BACLOFEN
  10. IMIPRAMINE [Concomitant]
     Active Substance: IMIPRAMINE
  11. LISINOPRIL. [Concomitant]
     Active Substance: LISINOPRIL

REACTIONS (1)
  - Urinary tract infection [None]

NARRATIVE: CASE EVENT DATE: 20141230
